FAERS Safety Report 23693181 (Version 1)
Quarter: 2024Q2

REPORT INFORMATION
  Report Type: Report from Study
  Country: DE (occurrence: DE)
  Receive Date: 20240401
  Receipt Date: 20240401
  Transmission Date: 20240716
  Serious: Yes (Other)
  Sender: FDA-Public Use
  Company Number: DE-AUROBINDO-AUR-APL-2024-013682

PATIENT
  Age: 4 Year
  Sex: Male

DRUGS (8)
  1. LEVETIRACETAM [Suspect]
     Active Substance: LEVETIRACETAM
     Indication: Tonic convulsion
     Dosage: 40 MILLIGRAM/KILOGRAM, ONCE A DAY
     Route: 065
  2. LEVETIRACETAM [Suspect]
     Active Substance: LEVETIRACETAM
     Indication: Partial seizures
  3. PHENOBARBITAL [Suspect]
     Active Substance: PHENOBARBITAL
     Indication: Partial seizures
     Dosage: UNK
     Route: 065
  4. PHENOBARBITAL [Suspect]
     Active Substance: PHENOBARBITAL
     Indication: Tonic convulsion
  5. ASPARAGINE [Suspect]
     Active Substance: ASPARAGINE
     Indication: Product used for unknown indication
     Dosage: 50 MILLIGRAM/KILOGRAM, ONCE A DAY
     Route: 065
  6. ASPARAGINE [Suspect]
     Active Substance: ASPARAGINE
     Dosage: 100 MILLIGRAM/KILOGRAM, ONCE A DAY
     Route: 065
  7. CLOBAZAM [Suspect]
     Active Substance: CLOBAZAM
     Indication: Partial seizures
     Dosage: 1 MILLIGRAM/KILOGRAM, ONCE A DAY
     Route: 065
  8. CLOBAZAM [Suspect]
     Active Substance: CLOBAZAM
     Indication: Tonic convulsion

REACTIONS (2)
  - Drug ineffective [Unknown]
  - Off label use [Unknown]
